FAERS Safety Report 17571055 (Version 1)
Quarter: 2020Q1

REPORT INFORMATION
  Report Type: Spontaneous
  Country: RO (occurrence: RO)
  Receive Date: 20200323
  Receipt Date: 20200323
  Transmission Date: 20200409
  Serious: Yes (Other)
  Sender: FDA-Public Use
  Company Number: RO-ACCORD-176168

PATIENT
  Age: 42 Year
  Sex: Female

DRUGS (7)
  1. CAPECITABINE. [Suspect]
     Active Substance: CAPECITABINE
     Indication: PRODUCT USED FOR UNKNOWN INDICATION
     Dates: start: 201804
  2. TAMOXIFEN [Suspect]
     Active Substance: TAMOXIFEN
     Indication: PRODUCT USED FOR UNKNOWN INDICATION
  3. ZOLADEX [Suspect]
     Active Substance: GOSERELIN ACETATE
     Indication: PRODUCT USED FOR UNKNOWN INDICATION
  4. ZOLEDRONIC ACID [Suspect]
     Active Substance: ZOLEDRONIC ACID
     Indication: PRODUCT USED FOR UNKNOWN INDICATION
  5. DENOSUMAB [Suspect]
     Active Substance: DENOSUMAB
     Indication: PRODUCT USED FOR UNKNOWN INDICATION
     Dates: start: 201804
  6. PALBOCICLIB [Suspect]
     Active Substance: PALBOCICLIB
     Indication: PRODUCT USED FOR UNKNOWN INDICATION
     Dates: start: 201912
  7. FULVESTRANT. [Suspect]
     Active Substance: FULVESTRANT
     Indication: PRODUCT USED FOR UNKNOWN INDICATION
     Route: 030
     Dates: start: 201912

REACTIONS (12)
  - Therapy non-responder [Unknown]
  - Abdominal lymphadenopathy [Unknown]
  - Lymphadenopathy [Unknown]
  - Jaundice [Unknown]
  - Ocular icterus [Unknown]
  - Hepatocellular injury [Recovered/Resolved]
  - Cholestasis [Unknown]
  - Hepatic lesion [Unknown]
  - Leukopenia [Unknown]
  - Neutropenia [Unknown]
  - Bladder cancer [Unknown]
  - Adnexa uteri mass [Unknown]

NARRATIVE: CASE EVENT DATE: 201804
